FAERS Safety Report 5025914-3 (Version None)
Quarter: 2006Q2

REPORT INFORMATION
  Report Type: 
  Country: None (occurrence: None)
  Receive Date: 20060614
  Receipt Date: 20060607
  Transmission Date: 20061013
  Serious: Yes (Hospitalization)
  Sender: FDA-Public Use
  Company Number: US-GLAXOSMITHKLINE-A0608359A

PATIENT
  Age: 40 Year
  Sex: Female

DRUGS (3)
  1. ADVAIR DISKUS 100/50 [Suspect]
     Indication: COUGH
     Dosage: 1PUFF TWICE PER DAY
     Route: 055
  2. BETA AGONIST [Concomitant]
  3. STEROID [Concomitant]

REACTIONS (5)
  - ANGIONEUROTIC OEDEMA [None]
  - BRONCHOSPASM PARADOXICAL [None]
  - CHEST PAIN [None]
  - DYSPNOEA [None]
  - HYPERSENSITIVITY [None]
